FAERS Safety Report 7546482-8 (Version None)
Quarter: 2011Q2

REPORT INFORMATION
  Report Type: 
  Country: None (occurrence: None)
  Receive Date: 20110614
  Receipt Date: 20110607
  Transmission Date: 20111010
  Serious: Yes (Other)
  Sender: FDA-Public Use
  Company Number: US-B.I. PHARMACEUTICALS,INC./RIDGEFIELD-2011-BP-14903BP

PATIENT
  Sex: Female

DRUGS (2)
  1. PRADAXA [Suspect]
     Indication: ATRIAL FIBRILLATION
     Dosage: 300 MG
     Route: 048
     Dates: start: 20110406, end: 20110523
  2. CELEBREX [Concomitant]

REACTIONS (5)
  - HAEMATOCHEZIA [None]
  - CONSTIPATION [None]
  - FAECES HARD [None]
  - ABDOMINAL PAIN UPPER [None]
  - DIVERTICULITIS INTESTINAL HAEMORRHAGIC [None]
